FAERS Safety Report 5853861-3 (Version None)
Quarter: 2008Q3

REPORT INFORMATION
  Report Type: 
  Country: None (occurrence: None)
  Receive Date: 20080822
  Receipt Date: 20080812
  Transmission Date: 20090109
  Serious: Yes (Hospitalization, Other)
  Sender: FDA-Public Use
  Company Number: IN-ABBOTT-08P-078-0462049-00

PATIENT
  Age: 10 Year
  Sex: Female
  Weight: 20 kg

DRUGS (3)
  1. EPILEX [Suspect]
     Indication: CONVULSION
     Dosage: 200MG/5ML
     Dates: start: 20080611, end: 20080625
  2. EPILEX [Suspect]
     Route: 048
     Dates: start: 20080611, end: 20080625
  3. ALBENDAZOLE [Concomitant]
     Indication: HELMINTHIC INFECTION
     Route: 048
     Dates: start: 20080611, end: 20080611

REACTIONS (4)
  - BLISTER [None]
  - STEVENS-JOHNSON SYNDROME [None]
  - STOMATITIS [None]
  - SUPERINFECTION BACTERIAL [None]
